FAERS Safety Report 5271497-2 (Version None)
Quarter: 2007Q1

REPORT INFORMATION
  Report Type: 
  Country: None (occurrence: None)
  Receive Date: 20070316
  Receipt Date: 20070307
  Transmission Date: 20070707
  Serious: Yes (Other)
  Sender: FDA-Public Use
  Company Number: 07-000514

PATIENT
  Age: 39 Year
  Sex: Female
  Weight: 74.8 kg

DRUGS (2)
  1. LOESTRIN 24 FE [Suspect]
     Indication: MENSTRUATION IRREGULAR
     Dosage: 20/1000UG, QD, ORAL
     Route: 048
     Dates: start: 20070114
  2. DORYX [Concomitant]

REACTIONS (3)
  - AMENORRHOEA [None]
  - LYME DISEASE [None]
  - METRORRHAGIA [None]
